FAERS Safety Report 8622805-3 (Version None)
Quarter: 2012Q3

REPORT INFORMATION
  Report Type: 
  Country: None (occurrence: None)
  Receive Date: 20120827
  Receipt Date: 20120820
  Transmission Date: 20120928
  Serious: Yes (Other)
  Sender: FDA-Public Use
  Company Number: BR-JNJFOC-20120811063

PATIENT
  Age: 22 Year
  Sex: Female
  Weight: 58 kg

DRUGS (2)
  1. MICRONOR [Suspect]
     Route: 048
     Dates: start: 20110701, end: 20110701
  2. MICRONOR [Suspect]
     Indication: CONTRACEPTION
     Route: 048
     Dates: start: 20120101, end: 20120703

REACTIONS (3)
  - CHOLELITHIASIS [None]
  - PREGNANCY ON ORAL CONTRACEPTIVE [None]
  - MATERNAL EXPOSURE DURING PREGNANCY [None]
